FAERS Safety Report 6078945-9 (Version None)
Quarter: 2009Q1

REPORT INFORMATION
  Report Type: 
  Country: None (occurrence: None)
  Receive Date: 20090216
  Receipt Date: 20090202
  Transmission Date: 20090719
  Serious: Yes (Hospitalization, Other)
  Sender: FDA-Public Use
  Company Number: US-ELI_LILLY_AND_COMPANY-US200901000351

PATIENT
  Sex: Female

DRUGS (2)
  1. FORTEO [Suspect]
     Indication: OSTEOPOROSIS
     Dates: start: 20070101
  2. LITHIUM CARBONATE [Concomitant]

REACTIONS (3)
  - BIPOLAR I DISORDER [None]
  - BLOOD POTASSIUM DECREASED [None]
  - BLOOD PRESSURE ABNORMAL [None]
